FAERS Safety Report 5748666-8 (Version None)
Quarter: 2008Q2

REPORT INFORMATION
  Report Type: 
  Country: None (occurrence: None)
  Receive Date: 20080521
  Receipt Date: 20080513
  Transmission Date: 20081010
  Serious: Yes (Hospitalization)
  Sender: FDA-Public Use
  Company Number: 2008US001345

PATIENT
  Age: 89 Year
  Sex: Female

DRUGS (1)
  1. VESICARE [Suspect]
     Indication: POLLAKIURIA

REACTIONS (2)
  - SMALL INTESTINAL OBSTRUCTION [None]
  - URINARY RETENTION [None]
